FAERS Safety Report 6608157-9 (Version None)
Quarter: 2010Q1

REPORT INFORMATION
  Report Type: 
  Country: None (occurrence: None)
  Receive Date: 20100301
  Receipt Date: 20100215
  Transmission Date: 20100710
  Serious: Yes (Hospitalization)
  Sender: FDA-Public Use
  Company Number: NL-MEDIMMUNE-MEDI-0010506

PATIENT
  Sex: Male
  Weight: 15 kg

DRUGS (3)
  1. SYNAGIS [Suspect]
     Route: 030
     Dates: start: 20091001, end: 20100113
  2. SYNAGIS [Suspect]
     Route: 030
     Dates: start: 20100210, end: 20100210
  3. AMOXICILLIN [Suspect]
     Indication: PNEUMONITIS
     Dates: start: 20100101

REACTIONS (3)
  - PNEUMONITIS [None]
  - RASH [None]
  - RESPIRATORY SYNCYTIAL VIRUS INFECTION [None]
